FAERS Safety Report 6334591-0 (Version None)
Quarter: 2009Q3

REPORT INFORMATION
  Report Type: 
  Country: None (occurrence: None)
  Receive Date: 20090831
  Receipt Date: 20090821
  Transmission Date: 20100115
  Serious: Yes (Hospitalization)
  Sender: FDA-Public Use
  Company Number: PHHY2009JP21950

PATIENT
  Sex: Female

DRUGS (8)
  1. AMN107 AMN+CAP [Suspect]
     Indication: CHRONIC MYELOID LEUKAEMIA
     Dosage: 800 MG DAILY
     Route: 048
     Dates: start: 20090515
  2. SOLANAX [Concomitant]
     Dosage: 1.2 MG
     Route: 048
     Dates: start: 20090515
  3. LOPRESOR [Concomitant]
     Dosage: 20 MG
     Route: 048
     Dates: start: 20090515
  4. ASPIRIN [Concomitant]
     Dosage: 20 MG
     Route: 048
     Dates: start: 20090515
  5. PURSENNIDE [Concomitant]
     Dosage: 24 MG
     Route: 048
     Dates: start: 20090515
  6. BONALON [Concomitant]
     Dosage: 35 MG
     Route: 048
     Dates: start: 20090515
  7. BONALON [Concomitant]
     Dosage: UNK
  8. MARZULENE S [Concomitant]
     Dosage: 2 G
     Route: 048
     Dates: start: 20090515

REACTIONS (8)
  - ABDOMINAL PAIN [None]
  - CHOLANGITIS [None]
  - DECREASED APPETITE [None]
  - ELECTROCARDIOGRAM QT PROLONGED [None]
  - GALLBLADDER CANCER [None]
  - LIVER DISORDER [None]
  - NEOPLASM MALIGNANT [None]
  - PANCREATITIS [None]
